FAERS Safety Report 8861586 (Version 2)
Quarter: 2012Q4

REPORT INFORMATION
  Report Type: Spontaneous
  Country: FR (occurrence: None)
  Receive Date: 20121024
  Receipt Date: 20121126
  Transmission Date: 20130627
  Serious: Yes (Hospitalization)
  Sender: FDA-Public Use
  Company Number: 2012-541

PATIENT
  Age: 2 Day
  Sex: Male

DRUGS (1)
  1. CLOZAPINE [Suspect]
     Indication: SCHIZOPHRENIA

REACTIONS (6)
  - Gastrointestinal hypomotility [None]
  - Maternal drugs affecting foetus [None]
  - Macrosomia [None]
  - Intestinal obstruction [None]
  - Increased upper airway secretion [None]
  - Feeding disorder neonatal [None]
